FAERS Safety Report 5456595-2 (Version None)
Quarter: 2007Q3

REPORT INFORMATION
  Report Type: 
  Country: None (occurrence: None)
  Receive Date: 20070918
  Receipt Date: 20070917
  Transmission Date: 20080115
  Serious: Yes (Hospitalization)
  Sender: FDA-Public Use
  Company Number: GT-BRISTOL-MYERS SQUIBB COMPANY-13855150

PATIENT
  Age: 28 Year
  Sex: Male

DRUGS (3)
  1. ATAZANAVIR SULFATE [Suspect]
     Route: 048
     Dates: start: 20060711
  2. RITONAVIR [Suspect]
     Route: 048
     Dates: start: 20060626
  3. TENOFOVIR DF + EMTRICITABINE [Suspect]
     Dosage: 200/300 MG DAILY
     Route: 048
     Dates: start: 20060626

REACTIONS (2)
  - DEPRESSION [None]
  - MALAISE [None]
